FAERS Safety Report 22975851 (Version 4)
Quarter: 2024Q2

REPORT INFORMATION
  Report Type: Spontaneous
  Country: US (occurrence: US)
  Receive Date: 20230925
  Receipt Date: 20240527
  Transmission Date: 20240716
  Serious: Yes (Other)
  Sender: FDA-Public Use
  Company Number: US-JNJFOC-20230942857

PATIENT
  Age: 5 Decade
  Sex: Female

DRUGS (2)
  1. ELMIRON [Suspect]
     Active Substance: PENTOSAN POLYSULFATE SODIUM
     Indication: Cystitis interstitial
     Dosage: 2 TIMES, 3 TIMES AND 4 TIMES DAILY
     Route: 048
     Dates: start: 2002, end: 2022
  2. OXYBUTYNIN [Concomitant]
     Active Substance: OXYBUTYNIN\OXYBUTYNIN CHLORIDE
     Indication: Micturition urgency
     Dates: start: 1999

REACTIONS (4)
  - Neovascular age-related macular degeneration [Not Recovered/Not Resolved]
  - Dry age-related macular degeneration [Not Recovered/Not Resolved]
  - Retinal toxicity [Unknown]
  - Off label use [Unknown]

NARRATIVE: CASE EVENT DATE: 20020101
